FAERS Safety Report 26209232 (Version 1)
Quarter: 2025Q4

REPORT INFORMATION
  Report Type: Spontaneous
  Country: EU (occurrence: EU)
  Receive Date: 20251229
  Receipt Date: 20251229
  Transmission Date: 20260118
  Serious: Yes (Hospitalization, Other)
  Sender: TEVA
  Company Number: None

PATIENT
  Age: 67 Year
  Sex: Female
  Weight: 68 kg

DRUGS (1)
  1. ATORVASTATIN [Suspect]
     Active Substance: ATORVASTATIN
     Indication: Blood cholesterol increased
     Route: 048
     Dates: start: 20251106, end: 20251127

REACTIONS (8)
  - Hepatitis [Recovering/Resolving]
  - Blood bilirubin increased [Recovering/Resolving]
  - Chills [Recovering/Resolving]
  - Hepatic enzyme increased [Recovering/Resolving]
  - Yellow skin [Recovering/Resolving]
  - Pyrexia [Recovering/Resolving]
  - Diarrhoea [Recovering/Resolving]
  - Chromaturia [Recovering/Resolving]

NARRATIVE: CASE EVENT DATE: 20251122
